FAERS Safety Report 24065330 (Version 2)
Quarter: 2024Q3

REPORT INFORMATION
  Report Type: Spontaneous
  Country: DE (occurrence: DE)
  Receive Date: 20240709
  Receipt Date: 20240710
  Transmission Date: 20241017
  Serious: Yes (Hospitalization)
  Sender: TORRENT
  Company Number: DE-TORRENT-00026956

PATIENT
  Age: 32 Year
  Sex: Male
  Weight: 78 kg

DRUGS (2)
  1. QUETIAPINE FUMARATE [Suspect]
     Active Substance: QUETIAPINE FUMARATE
     Indication: Product used for unknown indication
     Dosage: ONE TABLET 4 TIMES DAILY FOR 5 WEEKS
     Route: 065
     Dates: start: 20240510
  2. MIRTAZAPINE [Concomitant]
     Active Substance: MIRTAZAPINE
     Indication: Product used for unknown indication
     Dosage: UNKNOWN
     Route: 065
     Dates: start: 20240510

REACTIONS (3)
  - Heart rate increased [Unknown]
  - Blood pressure fluctuation [Unknown]
  - Blood potassium decreased [Unknown]
